FAERS Safety Report 8555233-X (Version None)
Quarter: 2012Q3

REPORT INFORMATION
  Report Type: 
  Country: None (occurrence: None)
  Receive Date: 20120731
  Receipt Date: 20120717
  Transmission Date: 20120928
  Serious: Yes (Other)
  Sender: FDA-Public Use
  Company Number: CHPA2012US015911

PATIENT
  Age: 39 Year
  Sex: Male

DRUGS (1)
  1. MAALOX ADV MAXIMUM STRENGTH ANTACID/ANTIGAS [Suspect]
     Indication: GASTROOESOPHAGEAL REFLUX DISEASE
     Dosage: 2 TSP, BID
     Route: 048
     Dates: start: 20090101, end: 20120201

REACTIONS (4)
  - WEIGHT DECREASED [None]
  - OFF LABEL USE [None]
  - APHAGIA [None]
  - THERAPEUTIC RESPONSE UNEXPECTED [None]
